FAERS Safety Report 10846609 (Version 1)
Quarter: 2015Q1

REPORT INFORMATION
  Report Type: Spontaneous
  Country: US (occurrence: US)
  Receive Date: 20150220
  Receipt Date: 20150220
  Transmission Date: 20150721
  Serious: Yes (Other)
  Sender: FDA-Public Use
  Company Number: US-GLAXOSMITHKLINE-US2015023058

PATIENT
  Sex: Female

DRUGS (3)
  1. ADVAIR DISKUS [Suspect]
     Active Substance: FLUTICASONE PROPIONATE\SALMETEROL XINAFOATE
     Dosage: 500/50 1 PUFF, BID
     Route: 055
     Dates: start: 2015
  2. VENTOLIN HFA [Suspect]
     Active Substance: ALBUTEROL SULFATE
     Indication: CHRONIC OBSTRUCTIVE PULMONARY DISEASE
     Dates: start: 2009
  3. ADVAIR DISKUS [Suspect]
     Active Substance: FLUTICASONE PROPIONATE\SALMETEROL XINAFOATE
     Indication: CHRONIC OBSTRUCTIVE PULMONARY DISEASE
     Dosage: 250/50 1 PUFF BID
     Route: 055
     Dates: start: 2009, end: 2015

REACTIONS (9)
  - Hernia [Not Recovered/Not Resolved]
  - Immune system disorder [Not Recovered/Not Resolved]
  - Nasopharyngitis [Recovered/Resolved]
  - Dyspnoea [Recovered/Resolved]
  - Pneumonia [Recovered/Resolved]
  - Bronchitis [Recovered/Resolved]
  - Throat irritation [Recovered/Resolved]
  - Increased bronchial secretion [Recovered/Resolved]
  - Nasal discomfort [Recovered/Resolved]

NARRATIVE: CASE EVENT DATE: 2009
